FAERS Safety Report 24730166 (Version 2)
Quarter: 2024Q4

REPORT INFORMATION
  Report Type: Spontaneous
  Country: IT (occurrence: IT)
  Receive Date: 20241213
  Receipt Date: 20241217
  Transmission Date: 20250114
  Serious: Yes (Other)
  Sender: AMGEN
  Company Number: IT-AMGEN-ITASP2024242783

PATIENT
  Age: 56 Year
  Sex: Female
  Weight: 58 kg

DRUGS (3)
  1. TRASTUZUMAB [Suspect]
     Active Substance: TRASTUZUMAB
     Indication: Breast cancer metastatic
     Dosage: 472 MILLIGRAM, Q3WK
     Route: 040
     Dates: start: 20231009
  2. RUNIMOTAMAB [Suspect]
     Active Substance: RUNIMOTAMAB
     Indication: Breast cancer metastatic
     Dosage: 20 MILLIGRAM, Q3WK
     Route: 040
     Dates: start: 20231010
  3. RUNIMOTAMAB [Suspect]
     Active Substance: RUNIMOTAMAB
     Dosage: 60 MILLIGRAM (LAST DOSE PRIOR AE WAS 60 MG AND CONCENTRATION WAS 10 MG, TOTAL VOLUME PRIOR AE WAS 6
     Route: 040
     Dates: start: 20231017

REACTIONS (1)
  - Cytokine release syndrome [Recovered/Resolved]

NARRATIVE: CASE EVENT DATE: 20231019
